FAERS Safety Report 4973047-4 (Version None)
Quarter: 2006Q2

REPORT INFORMATION
  Report Type: 
  Country: None (occurrence: None)
  Receive Date: 20060410
  Receipt Date: 20060331
  Transmission Date: 20061013
  Serious: Yes (Other)
  Sender: FDA-Public Use
  Company Number: 2006045261

PATIENT
  Age: 70 Year
  Sex: Female
  Weight: 77.1115 kg

DRUGS (4)
  1. LYRICA [Suspect]
     Indication: DYSTONIA
     Dosage: (2 IN 1 D), ORAL
     Route: 048
     Dates: start: 20060329, end: 20060331
  2. LYRICA [Suspect]
     Indication: NEURALGIA
     Dosage: (2 IN 1 D), ORAL
     Route: 048
     Dates: start: 20060329, end: 20060331
  3. KLONOPIN [Suspect]
     Indication: ILL-DEFINED DISORDER
  4. BACLOFEN [Concomitant]

REACTIONS (8)
  - DIFFICULTY IN WALKING [None]
  - DRUG DOSE OMISSION [None]
  - FEELING HOT [None]
  - HYPOKINESIA [None]
  - MUSCLE SPASMS [None]
  - MUSCULOSKELETAL STIFFNESS [None]
  - MYALGIA [None]
  - SOMNOLENCE [None]
